FAERS Safety Report 21621431 (Version 1)
Quarter: 2022Q4

REPORT INFORMATION
  Report Type: Report from Study
  Country: US (occurrence: US)
  Receive Date: 20221121
  Receipt Date: 20221121
  Transmission Date: 20230113
  Serious: Yes (Death, Hospitalization, Disabling, Other)
  Sender: FDA-Public Use
  Company Number: US-PFIZER INC-202201308889

PATIENT
  Age: 66 Year
  Sex: Female

DRUGS (2)
  1. MANNITOL [Suspect]
     Active Substance: MANNITOL
     Indication: Blood osmolarity
     Dosage: 0.5-1 G/KG  (BOLOUS)
  2. SODIUM CHLORIDE [Suspect]
     Active Substance: SODIUM CHLORIDE
     Indication: Blood osmolarity
     Dosage: 3% OR 23% (BOLOUS)

REACTIONS (1)
  - Death [Fatal]
